FAERS Safety Report 4961250-9 (Version None)
Quarter: 2006Q2

REPORT INFORMATION
  Report Type: 
  Country: None (occurrence: None)
  Receive Date: 20060403
  Receipt Date: 20060321
  Transmission Date: 20061013
  Serious: Yes (Death, Life-Threatening, Hospitalization)
  Sender: FDA-Public Use
  Company Number: HR-NOVOPROD-251862

PATIENT
  Age: 48 Year
  Sex: Female
  Weight: 80 kg

DRUGS (8)
  1. NOVOSEVEN [Suspect]
     Indication: SUBARACHNOID HAEMORRHAGE
     Dosage: 6 MG, UNK
     Route: 042
     Dates: start: 20060209, end: 20060209
  2. NOVOSEVEN [Suspect]
     Dosage: 6 UNK, UNK
     Route: 042
     Dates: start: 20060209, end: 20060209
  3. AMLODIPINE [Concomitant]
     Dosage: 2.5 MG, QD
     Route: 048
     Dates: end: 20060214
  4. RANITIDINE [Concomitant]
     Route: 048
     Dates: end: 20060214
  5. METOCLOPRAMIDE [Concomitant]
     Route: 048
     Dates: end: 20060214
  6. MERONEM [Concomitant]
     Dates: end: 20060214
  7. VANCOMYCIN [Concomitant]
     Dates: end: 20060214
  8. GLEEVEC [Concomitant]
     Dates: end: 20060214

REACTIONS (1)
  - CONCOMITANT DISEASE PROGRESSION [None]
